FAERS Safety Report 9311209 (Version 1)
Quarter: 2013Q2

REPORT INFORMATION
  Report Type: Spontaneous
  Country: DE (occurrence: DE)
  Receive Date: 20130528
  Receipt Date: 20130528
  Transmission Date: 20140414
  Serious: Yes (Life-Threatening, Hospitalization)
  Sender: FDA-Public Use
  Company Number: DE-BAYER-2013-024830

PATIENT
  Age: 18 Year
  Sex: Female

DRUGS (1)
  1. YASMIN [Suspect]

REACTIONS (6)
  - Pulmonary embolism [Recovered/Resolved]
  - Pneumonia [None]
  - Pulmonary embolism [None]
  - Dyspnoea exertional [None]
  - Chest pain [None]
  - Contraindication to medical treatment [None]
